FAERS Safety Report 24637008 (Version 1)
Quarter: 2024Q4

REPORT INFORMATION
  Report Type: Spontaneous
  Country: US (occurrence: None)
  Receive Date: 20241118
  Receipt Date: 20241118
  Transmission Date: 20250115
  Serious: Yes (Death)
  Sender: Public
  Company Number: None

PATIENT
  Sex: Male

DRUGS (14)
  1. VIGABATRIN [Suspect]
     Active Substance: VIGABATRIN
     Indication: Epilepsy
     Dosage: FREQUENCY : TWICE A DAY;?
     Route: 048
  2. ACETAMINOPHEN [Concomitant]
     Active Substance: ACETAMINOPHEN
  3. ALBUTEROL [Concomitant]
     Active Substance: ALBUTEROL
  4. MUPIROCIN [Concomitant]
     Active Substance: MUPIROCIN
  5. AQUAPHOR [Concomitant]
     Active Substance: PETROLATUM
  6. ATROVENT [Concomitant]
     Active Substance: IPRATROPIUM BROMIDE
  7. PHENOBARBITAL [Concomitant]
     Active Substance: PHENOBARBITAL
  8. VITAMINS [Concomitant]
     Active Substance: VITAMINS
  9. POLYETHYLENE GLYCOL [Concomitant]
     Active Substance: POLYETHYLENE GLYCOL
  10. REFRESH CLASSIC [Concomitant]
     Active Substance: POLYVINYL ALCOHOL\POVIDONE
  11. TOPIRAMATE [Concomitant]
     Active Substance: TOPIRAMATE
  12. BUDESONIDE [Concomitant]
     Active Substance: BUDESONIDE
  13. CUVPOSA [Concomitant]
     Active Substance: GLYCOPYRROLATE
  14. GLYCERIN CHILD [Concomitant]

REACTIONS (1)
  - Death [None]
